FAERS Safety Report 25102195 (Version 1)
Quarter: 2025Q1

REPORT INFORMATION
  Report Type: Spontaneous
  Country: KR (occurrence: KR)
  Receive Date: 20250320
  Receipt Date: 20250320
  Transmission Date: 20250409
  Serious: Yes (Other)
  Sender: JOHNSON AND JOHNSON
  Company Number: KR-JNJFOC-20250344724

PATIENT
  Sex: Male

DRUGS (1)
  1. ERLEADA [Suspect]
     Active Substance: APALUTAMIDE
     Indication: Prostate cancer
     Route: 048

REACTIONS (10)
  - Thrombosis [Unknown]
  - Back pain [Unknown]
  - Muscle atrophy [Unknown]
  - Memory impairment [Unknown]
  - Abnormal dreams [Unknown]
  - Bruxism [Unknown]
  - Alopecia [Unknown]
  - Premature ageing [Unknown]
  - Dyspnoea [Unknown]
  - Skin atrophy [Unknown]
